FAERS Safety Report 5669288-3 (Version None)
Quarter: 2008Q1

REPORT INFORMATION
  Report Type: 
  Country: None (occurrence: None)
  Receive Date: 20080317
  Receipt Date: 20080310
  Transmission Date: 20080703
  Serious: Yes (Congenital Anomaly)
  Sender: FDA-Public Use
  Company Number: DE-TEVA-168510ISR

PATIENT

DRUGS (1)
  1. COPAXONE [Suspect]
     Route: 058

REACTIONS (9)
  - APLASIA [None]
  - BONE DISORDER [None]
  - CONGENITAL HAND MALFORMATION [None]
  - CONGENITAL HYDROCEPHALUS [None]
  - MICROCEPHALY [None]
  - SELECTIVE ABORTION [None]
  - SINGLE UMBILICAL ARTERY [None]
  - TRANSMISSION OF DRUG VIA SEMEN [None]
  - VENTRICULAR SEPTAL DEFECT [None]
